FAERS Safety Report 21297627 (Version 1)
Quarter: 2022Q3

REPORT INFORMATION
  Report Type: Spontaneous
  Country: US (occurrence: US)
  Receive Date: 20220906
  Receipt Date: 20220906
  Transmission Date: 20221027
  Serious: No
  Sender: FDA-Public Use
  Company Number: US-Blueprint Medicines Corporation-390

PATIENT
  Sex: Female

DRUGS (1)
  1. AYVAKIT [Suspect]
     Active Substance: AVAPRITINIB
     Indication: Systemic mastocytosis
     Route: 048
     Dates: start: 20210928

REACTIONS (7)
  - Parosmia [Unknown]
  - Skin disorder [Unknown]
  - Tryptase increased [Unknown]
  - Weight increased [Unknown]
  - Pruritus [Unknown]
  - Oedema peripheral [Unknown]
  - Memory impairment [Unknown]
